FAERS Safety Report 4820088-3 (Version None)
Quarter: 2005Q4

REPORT INFORMATION
  Report Type: 
  Country: None (occurrence: None)
  Receive Date: 20051103
  Receipt Date: 20051025
  Transmission Date: 20060501
  Serious: Yes (Other)
  Sender: FDA-Public Use
  Company Number: JP-ABBOTT-05P-087-0315531-00

PATIENT
  Age: 26 Year
  Sex: Female

DRUGS (3)
  1. CLARITHROMYCIN [Suspect]
     Indication: ACUTE SINUSITIS
     Route: 048
     Dates: start: 20050913, end: 20050914
  2. CARBOCISTEINE [Concomitant]
     Indication: PHARYNGITIS
     Route: 048
     Dates: start: 20050902, end: 20050914
  3. FEXOFENADINE HYDROCHLORIDE [Concomitant]
     Indication: RHINITIS ALLERGIC
     Route: 048
     Dates: start: 20050913, end: 20050914

REACTIONS (6)
  - DYSPNOEA [None]
  - FACE INJURY [None]
  - HYPOAESTHESIA [None]
  - LOSS OF CONSCIOUSNESS [None]
  - PALPITATIONS [None]
  - SLUGGISHNESS [None]
